FAERS Safety Report 20246370 (Version 1)
Quarter: 2021Q4

REPORT INFORMATION
  Report Type: Spontaneous
  Country: US (occurrence: None)
  Receive Date: 20211228
  Receipt Date: 20211228
  Transmission Date: 20220303
  Serious: Yes (Life-Threatening, Hospitalization)
  Sender: FDA-Public Use
  Company Number: None

PATIENT
  Age: 75 Year
  Sex: Male
  Weight: 130 kg

DRUGS (3)
  1. TOCILIZUMAB [Suspect]
     Active Substance: TOCILIZUMAB
     Indication: COVID-19
     Dosage: FREQUENCY : ONCE;?
     Route: 042
     Dates: start: 20211213, end: 20211213
  2. DEXAMETHASONE [Concomitant]
     Active Substance: DEXAMETHASONE
     Dates: start: 20211212, end: 20211222
  3. MICAFUNGIN [Concomitant]
     Active Substance: MICAFUNGIN

REACTIONS (5)
  - Influenza [None]
  - Staphylococcal infection [None]
  - Corynebacterium infection [None]
  - Candida infection [None]
  - Staphylococcal bacteraemia [None]

NARRATIVE: CASE EVENT DATE: 20211219
